FAERS Safety Report 9113053 (Version 1)
Quarter: 2013Q1

REPORT INFORMATION
  Report Type: Report from Study
  Country: US (occurrence: US)
  Receive Date: 20130211
  Receipt Date: 20130211
  Transmission Date: 20140127
  Serious: Yes (Other)
  Sender: FDA-Public Use
  Company Number: US-BAYER-2013-016241

PATIENT
  Age: 61 Year
  Sex: Female

DRUGS (3)
  1. BETASERON [Suspect]
     Indication: RELAPSING-REMITTING MULTIPLE SCLEROSIS
     Dosage: 8 MIU, QOD
     Route: 058
     Dates: start: 20020110, end: 20100616
  2. BETASERON [Suspect]
     Indication: RELAPSING-REMITTING MULTIPLE SCLEROSIS
     Dosage: 8 MIU, QOD
     Route: 058
     Dates: start: 20100928
  3. LISINOPRIL [Suspect]
     Indication: PRECEREBRAL ARTERY OCCLUSION
     Dosage: UNK
     Dates: start: 2012

REACTIONS (3)
  - Precerebral artery occlusion [None]
  - Erythema [Not Recovered/Not Resolved]
  - Nervousness [Not Recovered/Not Resolved]
